FAERS Safety Report 7120638-0 (Version None)
Quarter: 2010Q4

REPORT INFORMATION
  Report Type: 
  Country: None (occurrence: None)
  Receive Date: 20101122
  Receipt Date: 20101122
  Transmission Date: 20110411
  Serious: Yes (Other)
  Sender: FDA-Public Use
  Company Number: None

PATIENT
  Age: 24 Year
  Sex: Female

DRUGS (1)
  1. TYSABRI [Suspect]
     Indication: MULTIPLE SCLEROSIS
     Dosage: TYSABRI 300 MCG Q4 WKS IV
     Route: 042
     Dates: start: 20101006

REACTIONS (1)
  - IDIOPATHIC THROMBOCYTOPENIC PURPURA [None]
